FAERS Safety Report 9523229 (Version 1)
Quarter: 2013Q3

REPORT INFORMATION
  Report Type: Spontaneous
  Country: CA (occurrence: CA)
  Receive Date: 20130913
  Receipt Date: 20130913
  Transmission Date: 20140515
  Serious: Yes (Other)
  Sender: FDA-Public Use
  Company Number: CA-AMGEN-CANSP2013063128

PATIENT
  Age: 53 Year
  Sex: Male

DRUGS (2)
  1. ENBREL [Suspect]
     Indication: PSORIATIC ARTHROPATHY
     Dosage: 50 MG, UNK
     Route: 065
     Dates: start: 20130614, end: 20130809
  2. ANTIBIOTICS [Suspect]
     Indication: RASH
     Dosage: UNK
     Route: 065

REACTIONS (9)
  - Transient ischaemic attack [Not Recovered/Not Resolved]
  - Rash papular [Not Recovered/Not Resolved]
  - Rash pruritic [Not Recovered/Not Resolved]
  - Miliaria [Not Recovered/Not Resolved]
  - Vomiting [Recovered/Resolved]
  - Poor quality sleep [Not Recovered/Not Resolved]
  - Stress at work [Not Recovered/Not Resolved]
  - Weight decreased [Not Recovered/Not Resolved]
  - Psoriasis [Not Recovered/Not Resolved]
